FAERS Safety Report 9449298 (Version 1)
Quarter: 2013Q3

REPORT INFORMATION
  Report Type: Report from Study
  Country: DE (occurrence: DE)
  Receive Date: 20130808
  Receipt Date: 20130808
  Transmission Date: 20140515
  Serious: Yes (Hospitalization, Other)
  Sender: FDA-Public Use
  Company Number: DE-PFIZER INC-2013231257

PATIENT
  Sex: Female
  Weight: 69 kg

DRUGS (6)
  1. AROMASIN [Suspect]
     Indication: BREAST CANCER METASTATIC
     Dosage: 25 MG, 1X/DAY
     Dates: start: 20130409
  2. AFINITOR [Suspect]
     Indication: BREAST CANCER METASTATIC
     Dosage: 10 MG, 1X/DAY
     Dates: start: 20130409, end: 20130423
  3. AFINITOR [Suspect]
     Dosage: 10 MG, 1X/DAY
     Dates: start: 20130425, end: 20130528
  4. AFINITOR [Suspect]
     Dosage: 5 MG, 1X/DAY
     Dates: start: 20130528, end: 20130530
  5. AFINITOR [Suspect]
     Dosage: 10 MG, 1X/DAY
     Dates: start: 20130530, end: 20130701
  6. AFINITOR [Suspect]
     Dosage: 5 MG, 1X/DAY
     Dates: start: 20130701

REACTIONS (2)
  - General physical health deterioration [Not Recovered/Not Resolved]
  - Anaemia [Not Recovered/Not Resolved]
